FAERS Safety Report 9093534 (Version 1)
Quarter: 2013Q1

REPORT INFORMATION
  Report Type: Spontaneous
  Country: US (occurrence: None)
  Receive Date: 20130122
  Receipt Date: 20130122
  Transmission Date: 20140127
  Serious: Yes (Death)
  Sender: FDA-Public Use
  Company Number: 1553105

PATIENT
  Age: 23 Year
  Sex: Male

DRUGS (5)
  1. DROPERIDOL [Suspect]
     Dosage: NOT REPORTED, UNKNOWN, UNKNOWN?UNKNOWN
  2. LORAZEPAM [Suspect]
     Dosage: NOT REPORTED, UNKNOWN, UNKNOWN?UNKNOWN
  3. ETHANOL [Suspect]
     Dosage: NOT REPORTED, UNKNOWN, UNKNOWN?UNKNOWN
  4. ZOLPIDEM [Suspect]
     Dosage: NOT REPORTED, UNKNOWN, UNKNOWN?UNKNOWN
  5. OLANZAPINE [Suspect]
     Dosage: NOT REPORTED, UNKNOWN, UNKNOWN?UNKNOWN

REACTIONS (2)
  - Drug abuse [None]
  - Poisoning [None]
